FAERS Safety Report 4780372-9 (Version None)
Quarter: 2005Q3

REPORT INFORMATION
  Report Type: 
  Country: None (occurrence: None)
  Receive Date: 20050926
  Receipt Date: 20050926
  Transmission Date: 20060218
  Serious: Yes (Hospitalization)
  Sender: FDA-Public Use
  Company Number: None

PATIENT
  Sex: Male

DRUGS (2)
  1. CHLORTHALIDONE [Suspect]
     Indication: OEDEMA
     Dosage: 1/2 TAB QD
  2. DDAVP [Suspect]
     Dosage: 0.2MG QHS FOR URINE

REACTIONS (2)
  - CONVULSION [None]
  - HYPONATRAEMIA [None]
